FAERS Safety Report 19048331 (Version 2)
Quarter: 2021Q2

REPORT INFORMATION
  Report Type: Spontaneous
  Country: US (occurrence: US)
  Receive Date: 20210324
  Receipt Date: 20210401
  Transmission Date: 20210717
  Serious: No
  Sender: FDA-Public Use
  Company Number: US-ASTRAZENECA-2021A145264

PATIENT
  Age: 28686 Day
  Sex: Female
  Weight: 81.6 kg

DRUGS (5)
  1. BYDUREON BCISE [Suspect]
     Active Substance: EXENATIDE
     Indication: TYPE 2 DIABETES MELLITUS
     Route: 065
     Dates: start: 202102
  2. SOLIQUA 3 [Concomitant]
     Indication: DIABETES MELLITUS
  3. SOLIQUA 3 [Concomitant]
     Indication: DIABETES MELLITUS
  4. SOLIQUA 3 [Concomitant]
     Indication: DIABETES MELLITUS
  5. SOLIQUA 3 [Concomitant]
     Indication: DIABETES MELLITUS

REACTIONS (8)
  - Blood glucose increased [Not Recovered/Not Resolved]
  - Body height decreased [Unknown]
  - Injection site pain [Unknown]
  - Intentional product misuse [Unknown]
  - Wrong technique in device usage process [Unknown]
  - Injection site indentation [Unknown]
  - Device malfunction [Unknown]
  - Product dose omission issue [Recovered/Resolved]

NARRATIVE: CASE EVENT DATE: 20210311
